FAERS Safety Report 20105445 (Version 1)
Quarter: 2021Q4

REPORT INFORMATION
  Report Type: Spontaneous
  Country: US (occurrence: US)
  Receive Date: 20211124
  Receipt Date: 20211124
  Transmission Date: 20220303
  Serious: No
  Sender: FDA-Public Use
  Company Number: US-ELI_LILLY_AND_COMPANY-US202110012075

PATIENT
  Sex: Female

DRUGS (3)
  1. TRULICITY [Suspect]
     Active Substance: DULAGLUTIDE
     Indication: Type 2 diabetes mellitus
     Dosage: 0.75 MG, WEEKLY (1/W)
     Route: 058
     Dates: start: 202106
  2. TRULICITY [Suspect]
     Active Substance: DULAGLUTIDE
     Dosage: 0.75 MG, WEEKLY (1/W)
     Route: 058
     Dates: start: 202106
  3. HUMALOG [Suspect]
     Active Substance: INSULIN LISPRO
     Indication: Type 2 diabetes mellitus
     Dosage: 8 U, DAILY
     Route: 058
     Dates: start: 2015

REACTIONS (3)
  - Blood glucose increased [Unknown]
  - Fibromyalgia [Not Recovered/Not Resolved]
  - Incorrect dose administered [Unknown]

NARRATIVE: CASE EVENT DATE: 20190101
